FAERS Safety Report 21957947 (Version 1)
Quarter: 2023Q1

REPORT INFORMATION
  Report Type: Spontaneous
  Country: FR (occurrence: FR)
  Receive Date: 20230206
  Receipt Date: 20230206
  Transmission Date: 20230418
  Serious: Yes (Hospitalization)
  Sender: FDA-Public Use
  Company Number: None

PATIENT
  Age: 88 Year
  Sex: Female
  Weight: 52 kg

DRUGS (1)
  1. FUROSEMIDE [Suspect]
     Active Substance: FUROSEMIDE
     Indication: Oedema peripheral
     Dosage: 20 MILLIGRAM, QD
     Route: 048
     Dates: start: 20221220, end: 20221228

REACTIONS (2)
  - Toxic skin eruption [Recovering/Resolving]
  - Prurigo [Recovered/Resolved]

NARRATIVE: CASE EVENT DATE: 20221224
